FAERS Safety Report 5423293-0 (Version None)
Quarter: 2007Q3

REPORT INFORMATION
  Report Type: 
  Country: None (occurrence: None)
  Receive Date: 20070823
  Receipt Date: 20070816
  Transmission Date: 20080115
  Serious: Yes (Other)
  Sender: FDA-Public Use
  Company Number: PHBS2007BE13666

PATIENT
  Age: 65 Year
  Sex: Female

DRUGS (4)
  1. MIACALCIN [Suspect]
     Indication: OSTEOPOROSIS
     Dosage: 100 IU
     Dates: start: 20060901
  2. FOSAMAX [Concomitant]
     Indication: OSTEOPOROSIS
  3. OMEGA-3 [Concomitant]
  4. OTHER SUPPLEMENTS [Concomitant]

REACTIONS (5)
  - BLOOD PRESSURE DIASTOLIC DECREASED [None]
  - EPISTAXIS [None]
  - FLUSHING [None]
  - HEADACHE [None]
  - HYPERTENSION [None]
